FAERS Safety Report 5514865-3 (Version None)
Quarter: 2007Q4

REPORT INFORMATION
  Report Type: 
  Country: None (occurrence: None)
  Receive Date: 20071113
  Receipt Date: 20071105
  Transmission Date: 20080405
  Serious: Yes (Other)
  Sender: FDA-Public Use
  Company Number: US-ELI_LILLY_AND_COMPANY-US200711001021

PATIENT
  Age: 76 Year
  Sex: Male

DRUGS (3)
  1. HUMULIN 70/30 [Suspect]
     Dosage: 24 U, EACH MORNING
  2. HUMULIN 70/30 [Suspect]
     Dosage: 24 U, EACH EVENING
  3. HUMULIN R [Suspect]
     Dates: start: 19510101

REACTIONS (8)
  - ASTHENIA [None]
  - BLINDNESS UNILATERAL [None]
  - BLOOD GLUCOSE DECREASED [None]
  - BLOOD GLUCOSE INCREASED [None]
  - CEREBRAL HAEMORRHAGE [None]
  - EYE HAEMORRHAGE [None]
  - MIDDLE INSOMNIA [None]
  - NEUROPATHY [None]
